FAERS Safety Report 22524956 (Version 1)
Quarter: 2023Q2

REPORT INFORMATION
  Report Type: Spontaneous
  Country: US (occurrence: US)
  Receive Date: 20230606
  Receipt Date: 20230606
  Transmission Date: 20230722
  Serious: No
  Sender: FDA-Public Use
  Company Number: US-BRISTOL-MYERS SQUIBB COMPANY-2023-079362

PATIENT
  Age: 66 Year
  Sex: Female

DRUGS (1)
  1. POMALYST [Suspect]
     Active Substance: POMALIDOMIDE
     Indication: Osteonecrosis
     Dosage: FREQUENCY: TAKE 1 CAPSULE BY MOUTH ON AN EMPTY
     Route: 048
     Dates: start: 20230523

REACTIONS (2)
  - Abdominal discomfort [Unknown]
  - Off label use [Unknown]
